FAERS Safety Report 8379969-9 (Version None)
Quarter: 2012Q2

REPORT INFORMATION
  Report Type: 
  Country: None (occurrence: None)
  Receive Date: 20120523
  Receipt Date: 20120518
  Transmission Date: 20120825
  Serious: Yes (Other)
  Sender: FDA-Public Use
  Company Number: US-BAYER-2012-049630

PATIENT
  Age: 17 Year
  Sex: Female

DRUGS (1)
  1. MIRENA [Suspect]
     Indication: CONTRACEPTION
     Dosage: 20 MCG/24HR, QD
     Route: 015
     Dates: start: 20111212

REACTIONS (8)
  - COITAL BLEEDING [None]
  - FATIGUE [None]
  - DYSPAREUNIA [None]
  - MENSTRUATION IRREGULAR [None]
  - DIZZINESS [None]
  - ASTHENIA [None]
  - DEVICE DISLOCATION [None]
  - DRUG INEFFECTIVE [None]
